FAERS Safety Report 5872430-2 (Version None)
Quarter: 2008Q3

REPORT INFORMATION
  Report Type: 
  Country: None (occurrence: None)
  Receive Date: 20080905
  Receipt Date: 20080827
  Transmission Date: 20090109
  Serious: Yes (Hospitalization, Disabling, Other)
  Sender: FDA-Public Use
  Company Number: PHEH2008US06918

PATIENT
  Sex: Male

DRUGS (22)
  1. NEORAL [Suspect]
     Indication: HEART TRANSPLANT
     Dosage: 100 MG, BID
     Dates: start: 19971005
  2. NEORAL [Suspect]
     Indication: PROPHYLAXIS AGAINST TRANSPLANT REJECTION
  3. CELLCEPT [Suspect]
     Indication: PROPHYLAXIS AGAINST TRANSPLANT REJECTION
     Dosage: 1000 MG, BID
     Route: 048
     Dates: start: 19971005, end: 20080713
  4. CELLCEPT [Suspect]
     Dosage: 500 MG, QD
     Route: 048
     Dates: start: 20080714
  5. PREDNISONE TAB [Concomitant]
     Indication: PROPHYLAXIS AGAINST TRANSPLANT REJECTION
     Dosage: UNK
     Dates: start: 19971005
  6. PLAVIX [Concomitant]
  7. CRESTOR [Concomitant]
  8. FLOMAX [Concomitant]
  9. ASPIRIN [Concomitant]
  10. SYNTHROID [Concomitant]
  11. PRILOSEC [Concomitant]
  12. MAGNESIUM SULFATE [Concomitant]
  13. EFFEXOR [Concomitant]
  14. DITROPAN  /USA/ [Concomitant]
  15. TESTOSTERONE [Concomitant]
  16. OXYCONTIN [Concomitant]
  17. LORTAB [Concomitant]
  18. XANAX [Concomitant]
  19. ATIVAN [Concomitant]
  20. LASIX [Concomitant]
  21. CARDURA   /IRE/ [Concomitant]
  22. ZAROXOLYN [Concomitant]

REACTIONS (12)
  - AMNESIA [None]
  - APATHY [None]
  - BLOOD CREATININE INCREASED [None]
  - COGNITIVE DISORDER [None]
  - CONFUSIONAL STATE [None]
  - DYSKINESIA [None]
  - FALL [None]
  - GAIT DISTURBANCE [None]
  - INSOMNIA [None]
  - MOBILITY DECREASED [None]
  - PROGRESSIVE MULTIFOCAL LEUKOENCEPHALOPATHY [None]
  - RENAL FAILURE [None]
